FAERS Safety Report 18696589 (Version 1)
Quarter: 2021Q1

REPORT INFORMATION
  Report Type: Other
  Country: US (occurrence: US)
  Receive Date: 20210104
  Receipt Date: 20210104
  Transmission Date: 20210419
  Serious: Yes (Other)
  Sender: FDA-Public Use
  Company Number: US-ROCHE-2565677

PATIENT
  Age: 38 Year
  Sex: Female

DRUGS (3)
  1. ALTEPLASE. [Suspect]
     Active Substance: ALTEPLASE
     Route: 040
  2. LOVENOX [Concomitant]
     Active Substance: ENOXAPARIN SODIUM
  3. ALTEPLASE. [Suspect]
     Active Substance: ALTEPLASE
     Indication: PULMONARY EMBOLISM
     Route: 040

REACTIONS (2)
  - Haemorrhage [Recovered/Resolved]
  - Chest wall haematoma [Recovered/Resolved]
